FAERS Safety Report 15518334 (Version 2)
Quarter: 2018Q4

REPORT INFORMATION
  Report Type: Spontaneous
  Country: GB (occurrence: GB)
  Receive Date: 20181017
  Receipt Date: 20181022
  Transmission Date: 20190205
  Serious: Yes (Death, Other)
  Sender: FDA-Public Use
  Company Number: GB-ABBVIE-18K-167-2518702-00

PATIENT
  Age: 53 Year
  Sex: Male
  Weight: 104 kg

DRUGS (1)
  1. HUMIRA [Suspect]
     Active Substance: ADALIMUMAB
     Indication: PSORIASIS
     Route: 058
     Dates: start: 201603, end: 20180323

REACTIONS (2)
  - Death [Fatal]
  - Contusion [Unknown]

NARRATIVE: CASE EVENT DATE: 20171201
